FAERS Safety Report 16439880 (Version 1)
Quarter: 2019Q3

REPORT INFORMATION
  Report Type: Spontaneous
  Country: GB (occurrence: GB)
  Receive Date: 20190616
  Receipt Date: 20190616
  Transmission Date: 20191004
  Serious: Yes (Life-Threatening, Disabling, Other)
  Sender: FDA-Public Use
  Company Number: None

PATIENT
  Age: 5 Year
  Sex: Male
  Weight: 34 kg

DRUGS (5)
  1. SALMETEROL [Concomitant]
     Active Substance: SALMETEROL
  2. MICRONIZED BECLOMETASONE [Concomitant]
  3. VENTOLIN [Concomitant]
     Active Substance: ALBUTEROL SULFATE
  4. XINAFOATE [Concomitant]
  5. MONTELUKAST [Suspect]
     Active Substance: MONTELUKAST SODIUM
     Indication: ASTHMA
     Dosage: ?          QUANTITY:1 TABLET(S);?
     Route: 048
     Dates: start: 20150515, end: 20170412

REACTIONS (16)
  - Sleep terror [None]
  - Weight increased [None]
  - Aggression [None]
  - Headache [None]
  - Anxiety [None]
  - Suicidal ideation [None]
  - Pain in extremity [None]
  - Mood swings [None]
  - Fear [None]
  - Nausea [None]
  - Throat irritation [None]
  - Insomnia [None]
  - Brain neoplasm [None]
  - Abdominal pain upper [None]
  - Irritability [None]
  - Dyskinesia [None]

NARRATIVE: CASE EVENT DATE: 20170416
